FAERS Safety Report 5603745-0 (Version None)
Quarter: 2008Q1

REPORT INFORMATION
  Report Type: 
  Country: None (occurrence: None)
  Receive Date: 20080128
  Receipt Date: 20071127
  Transmission Date: 20080703
  Serious: Yes (Hospitalization)
  Sender: FDA-Public Use
  Company Number: NG-BAYER-200810487GPV

PATIENT
  Age: 38 Year
  Sex: Female

DRUGS (3)
  1. SALICYLATE [Suspect]
     Indication: HEADACHE
     Route: 065
  2. PHENACETIN [Suspect]
     Indication: HEADACHE
     Route: 065
  3. CODEINE [Suspect]
     Indication: HEADACHE
     Route: 065

REACTIONS (4)
  - CHROMATURIA [None]
  - HAEMOLYSIS [None]
  - JAUNDICE [None]
  - LIVER TENDERNESS [None]
